FAERS Safety Report 14384442 (Version 1)
Quarter: 2018Q1

REPORT INFORMATION
  Report Type: Spontaneous
  Country: SG (occurrence: SG)
  Receive Date: 20180115
  Receipt Date: 20180115
  Transmission Date: 20180509
  Serious: Yes (Hospitalization)
  Sender: FDA-Public Use
  Company Number: SG-PERRIGO-18SG000080

PATIENT
  Age: 36 Year
  Sex: Male
  Weight: 72.1 kg

DRUGS (1)
  1. ACETAMINOPHEN. [Suspect]
     Active Substance: ACETAMINOPHEN
     Indication: MIGRAINE
     Dosage: 7.5 G, OVER A 7 HOUR PERIOD
     Route: 048

REACTIONS (5)
  - Drug-induced liver injury [Unknown]
  - Gastroenteritis [Unknown]
  - Hepatitis acute [Unknown]
  - Sepsis [Unknown]
  - Overdose [Recovered/Resolved]
